FAERS Safety Report 5499709-0 (Version None)
Quarter: 2007Q4

REPORT INFORMATION
  Report Type: 
  Country: None (occurrence: None)
  Receive Date: 20071026
  Receipt Date: 20071024
  Transmission Date: 20080405
  Serious: Yes (Other)
  Sender: FDA-Public Use
  Company Number: KR-ROXANE LABORATORIES, INC-2007-DE-06140GD

PATIENT

DRUGS (4)
  1. ASPIRIN [Suspect]
     Indication: ANTIPLATELET THERAPY
  2. CILOSTAZOL [Suspect]
     Indication: ANTIPLATELET THERAPY
     Dosage: LOADING DOSE OF 200 MG IMMEDIATELY AFTER THE PROCEDURE FOLLOWED BY 100 MG TWICE DAILY
  3. CLOPIDOGREL [Suspect]
     Indication: ANTIPLATELET THERAPY
  4. DRUG ELUTING FROM STENT [Suspect]

REACTIONS (1)
  - THROMBOSIS IN DEVICE [None]
